FAERS Safety Report 5213582-7 (Version None)
Quarter: 2007Q1

REPORT INFORMATION
  Report Type: 
  Country: None (occurrence: None)
  Receive Date: 20070119
  Receipt Date: 20070107
  Transmission Date: 20070707
  Serious: Yes (Other)
  Sender: FDA-Public Use
  Company Number: GB-SHR-GB-2007-001491

PATIENT

DRUGS (3)
  1. ULTRAVIST 150 [Suspect]
     Indication: ARTHROGRAM
     Dosage: 5 ML, 1 DOSE
     Route: 014
  2. MAGNEVIST [Suspect]
     Indication: ARTHROGRAM
     Dosage: .1 ML, UNK
     Route: 014
  3. LIGNOCAINE [Suspect]
     Indication: ARTHROGRAM
     Dosage: 5 ML, 1 DOSE
     Route: 014

REACTIONS (1)
  - ARTHRALGIA [None]
